FAERS Safety Report 24645817 (Version 1)
Quarter: 2024Q4

REPORT INFORMATION
  Report Type: Spontaneous
  Country: FR (occurrence: FR)
  Receive Date: 20241121
  Receipt Date: 20241121
  Transmission Date: 20250115
  Serious: Yes (Hospitalization, Other)
  Sender: HIKMA
  Company Number: FR-HIKMA PHARMACEUTICALS USA INC.-FR-H14001-24-10745

PATIENT
  Age: 31 Year
  Sex: Male

DRUGS (3)
  1. DAPTOMYCIN [Suspect]
     Active Substance: DAPTOMYCIN
     Indication: Product used for unknown indication
     Dosage: 500 MILLIGRAM, Q8H
     Route: 065
     Dates: start: 20240930, end: 20241017
  2. PIPERACILLIN SODIUM [Suspect]
     Active Substance: PIPERACILLIN SODIUM
     Indication: Postoperative wound infection
     Dosage: 4 GRAM, Q8H
     Route: 042
     Dates: start: 20240930, end: 20241017
  3. TAZOBACTAM [Suspect]
     Active Substance: TAZOBACTAM
     Indication: Postoperative wound infection
     Dosage: 0.5 GRAM, Q8H
     Route: 042
     Dates: start: 20240930, end: 20241017

REACTIONS (1)
  - Agranulocytosis [Recovering/Resolving]

NARRATIVE: CASE EVENT DATE: 20241017
